FAERS Safety Report 9921017 (Version 1)
Quarter: 2014Q1

REPORT INFORMATION
  Report Type: Other
  Country: DE (occurrence: DE)
  Receive Date: 20140225
  Receipt Date: 20140225
  Transmission Date: 20141002
  Serious: Yes (Congenital Anomaly, Other)
  Sender: FDA-Public Use
  Company Number: DE-SUN PHARMACEUTICAL INDUSTRIES LTD-2014SUN00369

PATIENT
  Age: 0 Day
  Sex: Female
  Weight: 3.55 kg

DRUGS (5)
  1. VENLAFAXINE HYDROCHLORIDE EXTENDED- RELEASE TABS 37.5MG [Suspect]
     Indication: POST-TRAUMATIC STRESS DISORDER
     Dosage: MATERNAL DOSE: 75 MG, BID
     Route: 064
     Dates: start: 20120926, end: 20130214
  2. VENLAFAXINE HYDROCHLORIDE EXTENDED- RELEASE TABS 37.5MG [Suspect]
     Dosage: MATERNAL DOSE: 75 MG, DAILY
     Route: 064
     Dates: end: 20130601
  3. FEMIBION [Concomitant]
     Indication: PROPHYLAXIS OF NEURAL TUBE DEFECT
     Dosage: 0.8 MG, OD
     Route: 064
     Dates: start: 20120825, end: 20130601
  4. METRONIDAZOLE [Concomitant]
     Indication: URINARY TRACT INFECTION
     Dosage: UNK
     Route: 064
     Dates: start: 20121102, end: 20121102
  5. CEFUROXIME [Concomitant]
     Indication: URINARY TRACT INFECTION
     Dosage: UNK
     Route: 064
     Dates: start: 20121102, end: 20121102

REACTIONS (3)
  - Haemangioma congenital [Recovering/Resolving]
  - Naevus flammeus [Unknown]
  - Foetal exposure during pregnancy [Unknown]
